FAERS Safety Report 7002788-2 (Version None)
Quarter: 2010Q3

REPORT INFORMATION
  Report Type: 
  Country: None (occurrence: None)
  Receive Date: 20100902
  Receipt Date: 20100628
  Transmission Date: 20110219
  Serious: Yes (Other)
  Sender: FDA-Public Use
  Company Number: 229631USA

PATIENT
  Sex: Female

DRUGS (2)
  1. METOCLOPRAMIDE [Suspect]
     Indication: ABDOMINAL PAIN
     Dosage: 10 MG
     Dates: start: 20060101, end: 20090101
  2. METOCLOPRAMIDE [Suspect]
     Indication: DYSPEPSIA
     Dosage: 10 MG
     Dates: start: 20060101, end: 20090101

REACTIONS (1)
  - TARDIVE DYSKINESIA [None]
